FAERS Safety Report 10594081 (Version 1)
Quarter: 2014Q4

REPORT INFORMATION
  Report Type: Spontaneous
  Country: FR (occurrence: FR)
  Receive Date: 20141119
  Receipt Date: 20141119
  Transmission Date: 20150529
  Serious: Yes (Hospitalization, Disabling)
  Sender: FDA-Public Use
  Company Number: FR-PFIZER INC-2014312158

PATIENT
  Age: 34 Year
  Sex: Female

DRUGS (5)
  1. TACROLIMUS MONOHYDRATE [Suspect]
     Active Substance: TACROLIMUS
     Dosage: UNK
  2. ZYVOXID [Suspect]
     Active Substance: LINEZOLID
     Dosage: 600 MG, 1X/DAY
     Route: 048
     Dates: start: 20140421, end: 20140717
  3. TAVANIC [Suspect]
     Active Substance: LEVOFLOXACIN
     Indication: PULMONARY TUBERCULOSIS
     Dosage: UNK
     Dates: start: 20140127, end: 20140717
  4. AMIKACIN [Suspect]
     Active Substance: AMIKACIN
     Indication: PULMONARY TUBERCULOSIS
     Dosage: UNK
     Dates: start: 20140227, end: 20140701
  5. ZYVOXID [Suspect]
     Active Substance: LINEZOLID
     Indication: PULMONARY TUBERCULOSIS
     Dosage: 600 MG, 2X/DAY
     Route: 048
     Dates: start: 20140203, end: 20140420

REACTIONS (2)
  - Deafness [Recovered/Resolved with Sequelae]
  - Neuropathy peripheral [Not Recovered/Not Resolved]

NARRATIVE: CASE EVENT DATE: 20140618
